FAERS Safety Report 6306156-8 (Version None)
Quarter: 2009Q3

REPORT INFORMATION
  Report Type: 
  Country: None (occurrence: None)
  Receive Date: 20090810
  Receipt Date: 20090723
  Transmission Date: 20100115
  Serious: Yes (Death)
  Sender: FDA-Public Use
  Company Number: 2009AL004452

PATIENT
  Age: 29 Year
  Sex: Female

DRUGS (7)
  1. DIGOXIN [Suspect]
     Dosage: 0.125MG, DAILY, PO
     Route: 048
  2. LASIX [Concomitant]
  3. K-DUR [Concomitant]
  4. PRINIVIL [Concomitant]
  5. SPIRONOLACTONE [Concomitant]
  6. TEQUIN [Concomitant]
  7. ROBITUSSIN [Concomitant]

REACTIONS (15)
  - ASTHENIA [None]
  - CARDIAC FAILURE CONGESTIVE [None]
  - CARDIOMEGALY [None]
  - CARDIOMYOPATHY [None]
  - CONDITION AGGRAVATED [None]
  - DYSPNOEA [None]
  - ECONOMIC PROBLEM [None]
  - FATIGUE [None]
  - FLANK PAIN [None]
  - INFLUENZA LIKE ILLNESS [None]
  - LOBAR PNEUMONIA [None]
  - MULTIPLE INJURIES [None]
  - ORTHOPNOEA [None]
  - PRESYNCOPE [None]
  - TUBERCULIN TEST POSITIVE [None]
